FAERS Safety Report 4291202-6 (Version None)
Quarter: 2004Q1

REPORT INFORMATION
  Report Type: 
  Country: None (occurrence: None)
  Receive Date: 20040211
  Receipt Date: 20031112
  Transmission Date: 20041129
  Serious: No
  Sender: FDA-Public Use
  Company Number: US-GLAXOSMITHKLINE-A0439422A

PATIENT
  Sex: Male

DRUGS (2)
  1. PAXIL [Suspect]
     Dosage: 20 PER DAY
     Route: 048
     Dates: start: 20021025, end: 20031108
  2. MULTI-VITAMIN [Concomitant]

REACTIONS (6)
  - ABNORMAL DREAMS [None]
  - ANXIETY [None]
  - DRUG WITHDRAWAL SYNDROME [None]
  - HEADACHE [None]
  - INSOMNIA [None]
  - IRRITABILITY [None]
